FAERS Safety Report 5477155-3 (Version None)
Quarter: 2007Q4

REPORT INFORMATION
  Report Type: 
  Country: None (occurrence: None)
  Receive Date: 20071004
  Receipt Date: 20071001
  Transmission Date: 20080405
  Serious: Yes (Hospitalization, Other)
  Sender: FDA-Public Use
  Company Number: A0649256A

PATIENT
  Age: 69 Year
  Sex: Male
  Weight: 90.4 kg

DRUGS (5)
  1. REQUIP [Suspect]
     Indication: RESTLESS LEGS SYNDROME
     Dosage: 2MG PER DAY
     Route: 048
  2. VIAGRA [Suspect]
     Indication: DRUG USE FOR UNKNOWN INDICATION
     Route: 065
  3. SYNTHROID [Concomitant]
  4. LIPITOR [Concomitant]
  5. CELEXA [Concomitant]

REACTIONS (6)
  - FEELING HOT [None]
  - HEART RATE DECREASED [None]
  - HYPERHIDROSIS [None]
  - IMMOBILE [None]
  - LOSS OF CONSCIOUSNESS [None]
  - VOMITING [None]
